FAERS Safety Report 24152201 (Version 1)
Quarter: 2024Q3

REPORT INFORMATION
  Report Type: Spontaneous
  Country: US (occurrence: None)
  Receive Date: 20240729
  Receipt Date: 20240729
  Transmission Date: 20241016
  Serious: Yes (Hospitalization)
  Sender: Public
  Company Number: None

PATIENT
  Age: 50 Year
  Sex: Male
  Weight: 120.2 kg

DRUGS (1)
  1. TRIUMEQ [Suspect]
     Active Substance: ABACAVIR SULFATE\DOLUTEGRAVIR SODIUM\LAMIVUDINE
     Indication: HIV infection
     Dosage: FREQUENCY : DAILY;?STRENGTH: 600/50/300
     Route: 048
     Dates: start: 20230103

REACTIONS (2)
  - Haemorrhage intracranial [None]
  - Cerebrovascular accident [None]

NARRATIVE: CASE EVENT DATE: 20240719
